FAERS Safety Report 9199197 (Version 1)
Quarter: 2013Q1

REPORT INFORMATION
  Report Type: Spontaneous
  Country: US (occurrence: US)
  Receive Date: 20130329
  Receipt Date: 20130329
  Transmission Date: 20140127
  Serious: No
  Sender: FDA-Public Use
  Company Number: US-009507513-1303USA010064

PATIENT
  Age: 16 None
  Sex: Female
  Weight: 52.15 kg

DRUGS (1)
  1. IMPLANON [Suspect]
     Indication: CONTRACEPTION
     Dosage: 1 DF, UNK
     Route: 059
     Dates: start: 201204

REACTIONS (7)
  - Malaise [Unknown]
  - Unintended pregnancy [Unknown]
  - Amenorrhoea [Unknown]
  - Metrorrhagia [Unknown]
  - Breast pain [Unknown]
  - Gastric dilatation [Unknown]
  - Food craving [Unknown]
